FAERS Safety Report 5260494-9 (Version None)
Quarter: 2007Q1

REPORT INFORMATION
  Report Type: 
  Country: None (occurrence: None)
  Receive Date: 20070309
  Receipt Date: 20061010
  Transmission Date: 20070707
  Serious: No
  Sender: FDA-Public Use
  Company Number: US-GLAXOSMITHKLINE-A0622414A

PATIENT
  Age: 49 Year
  Sex: Female

DRUGS (2)
  1. NICORETTE (MINT) [Suspect]
     Dosage: 2MG UNKNOWN
     Route: 048
     Dates: start: 19880101
  2. NICORETTE [Suspect]
     Dosage: 2MG UNKNOWN
     Route: 065

REACTIONS (8)
  - GINGIVAL BLEEDING [None]
  - GINGIVAL PAIN [None]
  - INTENTIONAL DRUG MISUSE [None]
  - JOINT STIFFNESS [None]
  - PHARMACEUTICAL PRODUCT COMPLAINT [None]
  - PSYCHOMOTOR HYPERACTIVITY [None]
  - TOOTH DISORDER [None]
  - TOOTHACHE [None]
